FAERS Safety Report 7811525-0 (Version None)
Quarter: 2011Q4

REPORT INFORMATION
  Report Type: 
  Country: None (occurrence: None)
  Receive Date: 20111013
  Receipt Date: 20111013
  Transmission Date: 20120403
  Serious: Yes (Hospitalization)
  Sender: FDA-Public Use
  Company Number: None

PATIENT
  Age: 84 Year
  Sex: Male

DRUGS (2)
  1. PRADAXA [Suspect]
     Indication: ATRIAL FLUTTER
     Dosage: 150MG
     Route: 048
     Dates: start: 20110621, end: 20110707
  2. PRADAXA [Suspect]
     Indication: ATRIAL FIBRILLATION
     Dosage: 150MG
     Route: 048
     Dates: start: 20110621, end: 20110707

REACTIONS (2)
  - HAEMATOCRIT DECREASED [None]
  - LARGE INTESTINAL HAEMORRHAGE [None]
